FAERS Safety Report 6574584-1 (Version None)
Quarter: 2010Q1

REPORT INFORMATION
  Report Type: 
  Country: None (occurrence: None)
  Receive Date: 20100209
  Receipt Date: 20100128
  Transmission Date: 20100710
  Serious: Yes (Other)
  Sender: FDA-Public Use
  Company Number: US-JNJFOC-20100201033

PATIENT
  Age: 26 Year
  Sex: Female
  Weight: 53.52 kg

DRUGS (6)
  1. REMICADE [Suspect]
     Indication: COLITIS ULCERATIVE
     Route: 042
  2. REMICADE [Suspect]
     Route: 042
  3. BENADRYL [Concomitant]
     Indication: RELAXATION THERAPY
  4. ENTOCORT EC [Concomitant]
     Dosage: 3 PILLS PER DAY
  5. ASACOL [Concomitant]
     Dosage: 3 PILLS IN MORNING AND 3 PILLS IN EVENING
  6. CARAFATE [Concomitant]
     Dosage: 1 PILL TWICE DAILY

REACTIONS (14)
  - ABNORMAL BEHAVIOUR [None]
  - AKATHISIA [None]
  - ARTHRALGIA [None]
  - CONVULSION [None]
  - COUGH [None]
  - CRYING [None]
  - EMOTIONAL DISORDER [None]
  - INSOMNIA [None]
  - LOSS OF CONSCIOUSNESS [None]
  - MENTAL IMPAIRMENT [None]
  - MUSCLE SPASMS [None]
  - MUSCULAR WEAKNESS [None]
  - PALPITATIONS [None]
  - SPEECH DISORDER [None]
